FAERS Safety Report 23346858 (Version 1)
Quarter: 2023Q4

REPORT INFORMATION
  Report Type: Spontaneous
  Country: US (occurrence: US)
  Receive Date: 20231228
  Receipt Date: 20231228
  Transmission Date: 20240109
  Serious: No
  Sender: FDA-Public Use
  Company Number: US-SA-SAC20231219000791

PATIENT
  Age: 51 Year
  Sex: Female

DRUGS (1)
  1. DUPIXENT [Suspect]
     Active Substance: DUPILUMAB
     Indication: Sinus polyp
     Dosage: 300 MG, QOW
     Route: 058

REACTIONS (6)
  - Rhinorrhoea [Unknown]
  - Condition aggravated [Unknown]
  - Arthralgia [Unknown]
  - Injection site pain [Unknown]
  - Eczema [Unknown]
  - Drug ineffective [Unknown]
